FAERS Safety Report 25604257 (Version 1)
Quarter: 2025Q3

REPORT INFORMATION
  Report Type: Spontaneous
  Country: US (occurrence: None)
  Receive Date: 20250725
  Receipt Date: 20250725
  Transmission Date: 20251021
  Serious: No
  Sender: COSMO TECHNOLOGIES
  Company Number: US-ARIS GLOBAL-CSM202501-000003

PATIENT
  Sex: Male

DRUGS (1)
  1. RIFAMYCIN SODIUM [Suspect]
     Active Substance: RIFAMYCIN SODIUM
     Indication: Mycobacterium avium complex infection
     Route: 065

REACTIONS (2)
  - Drug intolerance [Unknown]
  - Laboratory test abnormal [Unknown]
